FAERS Safety Report 8524341-1 (Version None)
Quarter: 2012Q3

REPORT INFORMATION
  Report Type: 
  Country: None (occurrence: None)
  Receive Date: 20120720
  Receipt Date: 20120713
  Transmission Date: 20120928
  Serious: Yes (Death, Hospitalization)
  Sender: FDA-Public Use
  Company Number: ES-GILEAD-2012-0056604

PATIENT
  Age: 40 Year
  Sex: Female

DRUGS (2)
  1. RALTEGRAVIR [Concomitant]
  2. TRUVADA [Suspect]
     Indication: PRODUCT USED FOR UNKNOWN INDICATION

REACTIONS (2)
  - PNEUMONIA [None]
  - RENAL TUBULAR NECROSIS [None]
